FAERS Safety Report 8216377-5 (Version None)
Quarter: 2012Q1

REPORT INFORMATION
  Report Type: 
  Country: None (occurrence: None)
  Receive Date: 20120316
  Receipt Date: 20120313
  Transmission Date: 20120608
  Serious: Yes (Other)
  Sender: FDA-Public Use
  Company Number: PHHO2011CA16883

PATIENT
  Sex: Female
  Weight: 72.3 kg

DRUGS (2)
  1. FTY [Suspect]
     Indication: MULTIPLE SCLEROSIS
     Dosage: 0.5 MG, QD
     Route: 048
     Dates: start: 20110428, end: 20110929
  2. FTY [Suspect]
     Dosage: 0.5 MG, QD
     Route: 048
     Dates: start: 20111004

REACTIONS (1)
  - BOWEN'S DISEASE [None]
